FAERS Safety Report 5898543-7 (Version None)
Quarter: 2008Q3

REPORT INFORMATION
  Report Type: 
  Country: None (occurrence: None)
  Receive Date: 20080925
  Receipt Date: 20080111
  Transmission Date: 20090109
  Serious: No
  Sender: FDA-Public Use
  Company Number: A0702764A

PATIENT
  Age: 39 Year
  Sex: Female

DRUGS (1)
  1. WELLBUTRIN XL [Suspect]
     Indication: FATIGUE
     Dosage: 150MG PER DAY
     Route: 048
     Dates: start: 20050101

REACTIONS (1)
  - SINUSITIS [None]
